FAERS Safety Report 19201014 (Version 1)
Quarter: 2021Q2

REPORT INFORMATION
  Report Type: Report from Study
  Country: US (occurrence: US)
  Receive Date: 20210430
  Receipt Date: 20210430
  Transmission Date: 20210717
  Serious: Yes (Death, Hospitalization, Other)
  Sender: FDA-Public Use
  Company Number: US-GILEAD-2021-0527141

PATIENT
  Age: 82 Year
  Sex: Female

DRUGS (3)
  1. REMODULIN [Suspect]
     Active Substance: TREPROSTINIL
     Indication: PULMONARY ARTERIAL HYPERTENSION
     Route: 065
  2. AMBRISENTAN [Suspect]
     Active Substance: AMBRISENTAN
     Indication: PULMONARY ARTERIAL HYPERTENSION
     Route: 065
  3. ADEMPAS [Suspect]
     Active Substance: RIOCIGUAT
     Indication: PRODUCT USED FOR UNKNOWN INDICATION
     Route: 065

REACTIONS (16)
  - Normocytic anaemia [Unknown]
  - Right ventricular failure [Unknown]
  - Hypotension [Unknown]
  - Thrombocytopenia [Unknown]
  - Pulmonary arterial hypertension [Unknown]
  - Hyperkalaemia [Unknown]
  - Hyponatraemia [Unknown]
  - Oedema peripheral [Unknown]
  - Acute kidney injury [Unknown]
  - Chronic respiratory failure [Unknown]
  - Encephalopathy [Unknown]
  - Cardiogenic shock [Unknown]
  - Cellulitis [Unknown]
  - Metabolic acidosis [Unknown]
  - Death [Fatal]
  - Chronic obstructive pulmonary disease [Unknown]
